FAERS Safety Report 15621756 (Version 1)
Quarter: 2018Q4

REPORT INFORMATION
  Report Type: Spontaneous
  Country: US (occurrence: US)
  Receive Date: 20181109
  Receipt Date: 20181109
  Transmission Date: 20190205
  Serious: No
  Sender: FDA-Public Use
  Company Number: None

PATIENT
  Sex: Female

DRUGS (1)
  1. BOTOX TOXIN TYPE A [Suspect]
     Active Substance: ONABOTULINUMTOXINA
     Indication: MIGRAINE
     Dosage: OTHER DOSE:155 UNITS;OTHER FREQUENCY:Q3M;?
     Route: 030
     Dates: start: 20180505

REACTIONS (1)
  - Jaw disorder [None]
